FAERS Safety Report 7328772-7 (Version None)
Quarter: 2011Q1

REPORT INFORMATION
  Report Type: 
  Country: None (occurrence: None)
  Receive Date: 20110303
  Receipt Date: 20110221
  Transmission Date: 20110831
  Serious: Yes (Hospitalization)
  Sender: FDA-Public Use
  Company Number: PHHY2010JP42971

PATIENT
  Sex: Male
  Weight: 62 kg

DRUGS (9)
  1. CARBAMAZEPINE [Suspect]
     Indication: EPILEPSY
     Dosage: 100 MG, BID
     Route: 048
     Dates: start: 20100308, end: 20100328
  2. CARBAMAZEPINE [Suspect]
     Dosage: 300 MG DAILY (ONE 100 MG TABLET AND ONE 200 MG TABLET DAILY)
     Route: 048
     Dates: start: 20100329, end: 20100416
  3. PREDONINE [Concomitant]
     Dosage: 25 MG DAILY
     Route: 048
     Dates: start: 20100501
  4. PREDONINE [Concomitant]
     Dosage: 20 MG DAILY
     Route: 048
     Dates: start: 20100508, end: 20100514
  5. PREDONINE [Concomitant]
     Dosage: 15 MG DAILY
     Route: 048
     Dates: start: 20100515, end: 20100521
  6. METHYLPREDNISOLONE [Concomitant]
     Dosage: 250 MG DAILY
     Dates: start: 20100418, end: 20100419
  7. PREDONINE [Concomitant]
     Dosage: 30 MG DAILY
     Route: 048
     Dates: start: 20100420
  8. PREDONINE [Concomitant]
     Dosage: 10 MG DAILY
     Route: 048
     Dates: start: 20100522, end: 20100528
  9. PREDONINE [Concomitant]
     Dosage: 5 MG DAILY
     Route: 048
     Dates: start: 20100529, end: 20100604

REACTIONS (14)
  - PYREXIA [None]
  - HUMAN HERPESVIRUS 6 INFECTION [None]
  - DRUG RASH WITH EOSINOPHILIA AND SYSTEMIC SYMPTOMS [None]
  - LYMPHOCYTE STIMULATION TEST POSITIVE [None]
  - LYMPHADENOPATHY [None]
  - RASH PUSTULAR [None]
  - DRUG ERUPTION [None]
  - LEUKOCYTOSIS [None]
  - ERYTHEMA [None]
  - FACE OEDEMA [None]
  - NECK PAIN [None]
  - RASH [None]
  - PRURITUS GENERALISED [None]
  - HEPATIC ENZYME INCREASED [None]
